FAERS Safety Report 13813688 (Version 1)
Quarter: 2017Q3

REPORT INFORMATION
  Report Type: Spontaneous
  Country: US (occurrence: US)
  Receive Date: 20170731
  Receipt Date: 20170731
  Transmission Date: 20171127
  Serious: Yes (Hospitalization, Other)
  Sender: FDA-Public Use
  Company Number: US-STRIDES ARCOLAB LIMITED-2017SP011257

PATIENT

DRUGS (2)
  1. ERGOCALCIFEROL. [Suspect]
     Active Substance: ERGOCALCIFEROL
     Indication: SUPPLEMENTATION THERAPY
     Dosage: 50000 IU WEEKLY
     Route: 065
  2. CALCIUM [Concomitant]
     Active Substance: CALCIUM
     Indication: SUPPLEMENTATION THERAPY
     Dosage: UNK
     Route: 065

REACTIONS (9)
  - Decreased appetite [Recovered/Resolved]
  - Hypercalcaemia [Recovered/Resolved]
  - Nephrolithiasis [Recovered/Resolved]
  - Diarrhoea [Unknown]
  - Hallucination [Recovered/Resolved]
  - Confusional state [Recovered/Resolved]
  - Weight decreased [Unknown]
  - Medication monitoring error [Unknown]
  - Hypervitaminosis D [Not Recovered/Not Resolved]
